FAERS Safety Report 18864560 (Version 1)
Quarter: 2021Q1

REPORT INFORMATION
  Report Type: Spontaneous
  Country: US (occurrence: US)
  Receive Date: 20210209
  Receipt Date: 20210209
  Transmission Date: 20210420
  Serious: No
  Sender: FDA-Public Use
  Company Number: US-GILEAD-2021-0515947

PATIENT
  Sex: Male

DRUGS (7)
  1. CEFUROXIME. [Concomitant]
     Active Substance: CEFUROXIME
  2. TYLENOL [Concomitant]
     Active Substance: ACETAMINOPHEN
  3. METRONIDAZOLE. [Concomitant]
     Active Substance: METRONIDAZOLE
  4. SOFOSBUVIR;VELPATASVIR [Suspect]
     Active Substance: SOFOSBUVIR\VELPATASVIR
     Indication: CHRONIC HEPATITIS C
     Dosage: 1 DOSAGE FORM, QD
     Route: 048
  5. FLUPHENAZINE HYDROCHLORIDE. [Concomitant]
     Active Substance: FLUPHENAZINE HYDROCHLORIDE
  6. COLACE [Concomitant]
     Active Substance: DOCUSATE SODIUM
  7. PANTOPRAZOLE [Concomitant]
     Active Substance: PANTOPRAZOLE

REACTIONS (4)
  - Abdominal pain upper [Unknown]
  - Vomiting [Unknown]
  - Illness [Unknown]
  - Product dose omission issue [Unknown]
